FAERS Safety Report 7065155-1 (Version None)
Quarter: 2010Q4

REPORT INFORMATION
  Report Type: 
  Country: None (occurrence: None)
  Receive Date: 20101027
  Receipt Date: 19931231
  Transmission Date: 20110411
  Serious: Yes (Death, Hospitalization)
  Sender: FDA-Public Use
  Company Number: FR-ROCHE-930500682003

PATIENT
  Age: 82 Year
  Sex: Male
  Weight: 82 kg

DRUGS (4)
  1. ROCEPHIN [Suspect]
     Indication: BRONCHITIS
     Route: 030
  2. ADALAT [Concomitant]
     Route: 048
  3. MONICOR L.P. [Concomitant]
     Route: 048
  4. LASIX [Concomitant]
     Route: 048

REACTIONS (2)
  - CARDIAC FAILURE [None]
  - DEATH [None]
